FAERS Safety Report 4337549-6 (Version None)
Quarter: 2004Q2

REPORT INFORMATION
  Report Type: 
  Country: None (occurrence: None)
  Receive Date: 20040408
  Receipt Date: 20040331
  Transmission Date: 20050107
  Serious: Yes (Hospitalization)
  Sender: FDA-Public Use
  Company Number: 2004207276FR

PATIENT
  Age: 62 Year
  Sex: Male

DRUGS (4)
  1. FRAGMIN [Suspect]
     Indication: ATRIAL FLUTTER
     Dosage: SEE IMAGE
     Route: 058
     Dates: start: 20031113, end: 20031125
  2. FRAGMIN [Suspect]
     Indication: ATRIAL FLUTTER
     Dosage: SEE IMAGE
     Route: 058
     Dates: start: 20031113, end: 20031125
  3. KETOPROFEN [Suspect]
     Indication: BACK PAIN
     Dosage: INTRAMUSCULAR
     Route: 030
  4. LOVENOX (HEPARIN FRACTION) [Concomitant]

REACTIONS (6)
  - EXTRADURAL ABSCESS [None]
  - GASTRIC ULCER [None]
  - GASTROINTESTINAL HAEMORRHAGE [None]
  - HAEMATEMESIS [None]
  - HAEMOGLOBIN DECREASED [None]
  - STAPHYLOCOCCAL ABSCESS [None]
